FAERS Safety Report 24829169 (Version 1)
Quarter: 2025Q1

REPORT INFORMATION
  Report Type: Spontaneous
  Country: KR (occurrence: KR)
  Receive Date: 20250110
  Receipt Date: 20250110
  Transmission Date: 20250409
  Serious: Yes (Hospitalization, Other)
  Sender: ORGANON
  Company Number: KR-ORGANON-O2501KOR000398

PATIENT
  Age: 66 Year
  Sex: Male
  Weight: 82 kg

DRUGS (8)
  1. ATORVASTATIN CALCIUM\EZETIMIBE [Suspect]
     Active Substance: ATORVASTATIN CALCIUM\EZETIMIBE
     Indication: Type IIa hyperlipidaemia
     Dosage: 1 DOSAGE FORM, QD (FILM-COATED TABLET)
     Route: 048
     Dates: start: 20160215, end: 20160906
  2. CELECOXIB [Concomitant]
     Active Substance: CELECOXIB
     Indication: Arthritis
     Dosage: 200 MILLIGRAM, QD (HARD CAPSULES, POWDER)
     Route: 048
     Dates: start: 20150602
  3. DILTIAZEM HYDROCHLORIDE [Concomitant]
     Active Substance: DILTIAZEM HYDROCHLORIDE
     Indication: Acute myocardial infarction
     Dosage: 90 MILLIGRAM, QD
     Route: 048
     Dates: start: 20131127
  4. IRBESARTAN [Concomitant]
     Active Substance: IRBESARTAN
     Indication: Acute myocardial infarction
     Dosage: 150 MILLIGRAM, QD
     Route: 048
     Dates: start: 20141013
  5. MOLSIDOMINE [Concomitant]
     Active Substance: MOLSIDOMINE
     Indication: Acute myocardial infarction
     Dosage: 4 MILLIGRAM, BID (UNCOATED TABLET)
     Route: 048
     Dates: start: 20131127
  6. CLOPIDOGREL BISULFATE [Concomitant]
     Active Substance: CLOPIDOGREL BISULFATE
     Indication: Prophylaxis
     Dosage: 15 MILLIGRAM, QD
     Route: 048
     Dates: start: 20150421
  7. POLAPREZINC [Concomitant]
     Active Substance: POLAPREZINC
     Indication: Prophylaxis
     Dosage: 75 MILLIGRAM, QD (UNCOATED TABLET)
     Route: 048
     Dates: start: 20150602
  8. LANSOPRAZOLE [Concomitant]
     Active Substance: LANSOPRAZOLE
     Indication: Prophylaxis
     Dosage: 15 MILLIGRAM, QD (UNCOATED TABLET)
     Route: 048
     Dates: start: 20131125

REACTIONS (2)
  - Intracranial aneurysm [Recovered/Resolved]
  - Vitamin D deficiency [Not Recovered/Not Resolved]

NARRATIVE: CASE EVENT DATE: 20160523
